FAERS Safety Report 5207610-2 (Version None)
Quarter: 2007Q1

REPORT INFORMATION
  Report Type: 
  Country: None (occurrence: None)
  Receive Date: 20070112
  Receipt Date: 20070102
  Transmission Date: 20070707
  Serious: Yes (Hospitalization)
  Sender: FDA-Public Use
  Company Number: DE-PFIZER INC-2005068244

PATIENT
  Age: 47 Year
  Sex: Female

DRUGS (4)
  1. ATORVASTATIN CALCIUM [Interacting]
     Indication: ILL-DEFINED DISORDER
     Route: 048
  2. SOLIAN [Suspect]
     Indication: SCHIZOPHRENIA
     Dosage: DAILY DOSE:1000MG-FREQ:UNKNOWN
     Route: 048
  3. TAXILAN [Interacting]
     Indication: SCHIZOPHRENIA
     Dosage: DAILY DOSE:200MG-FREQ:UNKNOWN
     Route: 048
  4. EMBOLEX [Concomitant]
     Route: 058
     Dates: start: 20041215, end: 20050105

REACTIONS (4)
  - CONVULSION [None]
  - DRUG INTERACTION [None]
  - INCONTINENCE [None]
  - PARKINSONISM [None]
